FAERS Safety Report 7816067-4 (Version None)
Quarter: 2011Q4

REPORT INFORMATION
  Report Type: 
  Country: None (occurrence: None)
  Receive Date: 20111015
  Receipt Date: 20111006
  Transmission Date: 20120403
  Serious: Yes (Other)
  Sender: FDA-Public Use
  Company Number: US-ASTRAZENECA-2011SE52044

PATIENT
  Age: 77 Year
  Sex: Female

DRUGS (17)
  1. ALLOPURINOL [Concomitant]
  2. POTASSIUM CHLORIDE [Concomitant]
  3. BUSPIRONE HCL [Concomitant]
  4. MECLIZINE [Concomitant]
  5. MELOXICAM [Concomitant]
  6. NEXIUM [Suspect]
     Route: 048
  7. PROMETHAZINE [Concomitant]
  8. DIPHENOXYLATE HCL + ATROPINE SULFATE [Concomitant]
  9. COMPAZINE [Concomitant]
  10. QUINAPRIL [Concomitant]
  11. HYDROCHLOROTHIAZIDE [Concomitant]
  12. ZOLPIDEM [Concomitant]
  13. SIMVASTATIN [Concomitant]
  14. LEVOXYL [Concomitant]
  15. DIAZEPAM [Concomitant]
  16. PRILOSEC [Suspect]
     Route: 048
  17. LOPRESSOR [Concomitant]

REACTIONS (8)
  - BLINDNESS UNILATERAL [None]
  - REGURGITATION [None]
  - GAIT DISTURBANCE [None]
  - NEOPLASM MALIGNANT [None]
  - NAUSEA [None]
  - DRUG INEFFECTIVE [None]
  - DIABETES MELLITUS [None]
  - EYE INJURY [None]
